FAERS Safety Report 22102348 (Version 4)
Quarter: 2023Q1

REPORT INFORMATION
  Report Type: Spontaneous
  Country: AU (occurrence: AU)
  Receive Date: 20230316
  Receipt Date: 20230324
  Transmission Date: 20230418
  Serious: Yes (Hospitalization, Other)
  Sender: FDA-Public Use
  Company Number: AU-CELLTRION INC.-2023AU005220

PATIENT

DRUGS (5)
  1. INFLECTRA [Suspect]
     Active Substance: INFLIXIMAB-DYYB
     Indication: Colitis ulcerative
     Dosage: UNK
     Dates: end: 2021
  2. INFLECTRA [Suspect]
     Active Substance: INFLIXIMAB-DYYB
     Dosage: 5 MG/KG, 8 WEEKLY
     Route: 042
     Dates: start: 202301
  3. INFLECTRA [Suspect]
     Active Substance: INFLIXIMAB-DYYB
     Dosage: 10 MG/KG, 8 WEEKLY
     Route: 042
  4. IMURAN [Concomitant]
     Active Substance: AZATHIOPRINE
     Dosage: 100 MG, DAILY
  5. MESALAMINE [Concomitant]
     Active Substance: MESALAMINE
     Dosage: 4 DF (4.8G), DAILY

REACTIONS (4)
  - Condition aggravated [Recovered/Resolved]
  - Yersinia infection [Unknown]
  - Drug ineffective [Unknown]
  - Off label use [Unknown]
